FAERS Safety Report 23846455 (Version 1)
Quarter: 2024Q2

REPORT INFORMATION
  Report Type: Spontaneous
  Country: BE (occurrence: BE)
  Receive Date: 20240513
  Receipt Date: 20240513
  Transmission Date: 20240716
  Serious: Yes (Other)
  Sender: FDA-Public Use
  Company Number: BE-BRISTOL-MYERS SQUIBB COMPANY-2024-070293

PATIENT
  Age: 75 Year
  Sex: Male

DRUGS (7)
  1. INREBIC [Suspect]
     Active Substance: FEDRATINIB HYDROCHLORIDE
     Indication: Myelofibrosis
     Dosage: DOSE : UNAVAILABLE;     FREQ : UNAVAILABLE
     Dates: start: 202401
  2. INREBIC [Suspect]
     Active Substance: FEDRATINIB HYDROCHLORIDE
  3. INREBIC [Suspect]
     Active Substance: FEDRATINIB HYDROCHLORIDE
  4. INREBIC [Suspect]
     Active Substance: FEDRATINIB HYDROCHLORIDE
  5. HYDREA [Concomitant]
     Active Substance: HYDROXYUREA
     Indication: Primary myelofibrosis
  6. HYDREA [Concomitant]
     Active Substance: HYDROXYUREA
  7. ALLOPURINOL [Concomitant]
     Active Substance: ALLOPURINOL
     Indication: Product used for unknown indication

REACTIONS (3)
  - Renal impairment [Unknown]
  - Thrombocytopenia [Unknown]
  - Malignant neoplasm progression [Unknown]
